FAERS Safety Report 26121782 (Version 2)
Quarter: 2025Q4

REPORT INFORMATION
  Report Type: Report from Study
  Country: US (occurrence: US)
  Receive Date: 20251204
  Receipt Date: 20251216
  Transmission Date: 20260117
  Serious: No
  Sender: MERCK SHARP & DOHME LLC
  Company Number: US-009507513-2353459

PATIENT
  Sex: Male
  Weight: 84.822 kg

DRUGS (22)
  1. SOTATERCEPT [Suspect]
     Active Substance: SOTATERCEPT
     Indication: Pulmonary arterial hypertension
     Route: 058
  2. SOTATERCEPT [Suspect]
     Active Substance: SOTATERCEPT
  3. SOTATERCEPT [Suspect]
     Active Substance: SOTATERCEPT
  4. SOTATERCEPT [Suspect]
     Active Substance: SOTATERCEPT
  5. YUTREPIA [Suspect]
     Active Substance: TREPROSTINIL SODIUM
     Indication: Pulmonary arterial hypertension
     Dosage: INHALE 2 BREATHS 26.5 MCG, 4 TIMES DAILY; STRENGTH: 26.5 MCG
     Route: 055
     Dates: start: 20251022
  6. CLOPIDOGREL [Concomitant]
     Active Substance: CLOPIDOGREL BISULFATE
  7. ARNUITY ELLIPTA [Concomitant]
     Active Substance: FLUTICASONE FUROATE
  8. ASPIRIN [Concomitant]
     Active Substance: ASPIRIN
  9. MUPIROCIN [Concomitant]
     Active Substance: MUPIROCIN
  10. OXYGEN [Concomitant]
     Active Substance: OXYGEN
  11. NITROGLYCERIN [Concomitant]
     Active Substance: NITROGLYCERIN
  12. ALPRAZOLAM [Concomitant]
     Active Substance: ALPRAZOLAM
  13. LOPERAMIDE [Concomitant]
     Active Substance: LOPERAMIDE
  14. JARDIANCE [Concomitant]
     Active Substance: EMPAGLIFLOZIN
  15. FUROSEMIDE [Concomitant]
     Active Substance: FUROSEMIDE
  16. EZETIMIBE [Concomitant]
     Active Substance: EZETIMIBE
  17. MACITENTAN\TADALAFIL [Concomitant]
     Active Substance: MACITENTAN\TADALAFIL
  18. OFEV [Concomitant]
     Active Substance: NINTEDANIB
  19. HUMULIN NOS [Concomitant]
     Active Substance: INSULIN HUMAN
  20. ALBUTEROL SULFATE [Concomitant]
     Active Substance: ALBUTEROL SULFATE
  21. CLOTRIMAZOLE [Concomitant]
     Active Substance: CLOTRIMAZOLE
  22. GABAPENTIN [Concomitant]
     Active Substance: GABAPENTIN

REACTIONS (1)
  - Drug hypersensitivity [Unknown]

NARRATIVE: CASE EVENT DATE: 20250101
